FAERS Safety Report 15620968 (Version 1)
Quarter: 2018Q4

REPORT INFORMATION
  Report Type: Spontaneous
  Country: SE (occurrence: SE)
  Receive Date: 20181115
  Receipt Date: 20181115
  Transmission Date: 20190205
  Serious: Yes (Hospitalization, Other)
  Sender: FDA-Public Use
  Company Number: SE-TEVA-2018-SE-974875

PATIENT
  Age: 74 Year
  Sex: Male

DRUGS (3)
  1. CYMBALTA [Suspect]
     Active Substance: DULOXETINE HYDROCHLORIDE
     Dosage: UNK
     Route: 065
     Dates: end: 20110214
  2. LYRICA [Suspect]
     Active Substance: PREGABALIN
     Indication: PHANTOM PAIN
     Dosage: UNK
     Route: 065
     Dates: end: 20110214
  3. AMLODIPIN [Suspect]
     Active Substance: AMLODIPINE BESYLATE
     Dosage: UNK
     Route: 065
     Dates: end: 20110214

REACTIONS (6)
  - Syncope [Recovered/Resolved]
  - Facial paralysis [Recovered/Resolved]
  - Dysarthria [Recovered/Resolved]
  - Dizziness [Recovered/Resolved]
  - Headache [Recovered/Resolved]
  - Orthostatic hypotension [Recovered/Resolved]

NARRATIVE: CASE EVENT DATE: 2011
